FAERS Safety Report 8005726-9 (Version None)
Quarter: 2011Q4

REPORT INFORMATION
  Report Type: 
  Country: None (occurrence: None)
  Receive Date: 20111223
  Receipt Date: 20111221
  Transmission Date: 20120403
  Serious: Yes (Other)
  Sender: FDA-Public Use
  Company Number: GXKR2011DE003403

PATIENT
  Sex: Male
  Weight: 66 kg

DRUGS (1)
  1. OMNITROPE [Suspect]
     Indication: MICROSOMIA
     Dosage: 1.8 TO 2.0 MG
     Route: 058
     Dates: start: 20100315, end: 20110501

REACTIONS (2)
  - BONE MARROW OEDEMA [None]
  - ARTHRALGIA [None]
